FAERS Safety Report 8008601-9 (Version None)
Quarter: 2011Q4

REPORT INFORMATION
  Report Type: 
  Country: None (occurrence: None)
  Receive Date: 20111227
  Receipt Date: 20111215
  Transmission Date: 20120403
  Serious: Yes (Other)
  Sender: FDA-Public Use
  Company Number: US-ROCHE-802954

PATIENT
  Sex: Female
  Weight: 45.4 kg

DRUGS (1)
  1. ACCUTANE [Suspect]
     Indication: ACNE
     Dosage: STOP DATE REPORTED AS MARCH 1005
     Route: 065
     Dates: start: 19940901, end: 19950201

REACTIONS (4)
  - COLITIS MICROSCOPIC [None]
  - CROHN'S DISEASE [None]
  - HAEMORRHOIDS [None]
  - COLITIS ULCERATIVE [None]
